FAERS Safety Report 11982572 (Version 1)
Quarter: 2016Q1

REPORT INFORMATION
  Report Type: Spontaneous
  Country: US (occurrence: None)
  Receive Date: 20160129
  Receipt Date: 20160129
  Transmission Date: 20160526
  Serious: Yes (Other)
  Sender: FDA-Public Use
  Company Number: None

PATIENT
  Age: 65 Year
  Sex: Female
  Weight: 54.43 kg

DRUGS (1)
  1. CARBIDOPA AND LEVODOPA 50/200MG ACCORD [Suspect]
     Active Substance: CARBIDOPA\LEVODOPA
     Indication: PARKINSON^S DISEASE
     Dosage: 1
     Route: 048
     Dates: start: 20160106, end: 20160121

REACTIONS (4)
  - Impaired driving ability [None]
  - Tremor [None]
  - Product substitution issue [None]
  - Visual impairment [None]

NARRATIVE: CASE EVENT DATE: 20160123
